FAERS Safety Report 5245012-3 (Version None)
Quarter: 2007Q1

REPORT INFORMATION
  Report Type: 
  Country: None (occurrence: None)
  Receive Date: 20070223
  Receipt Date: 20070213
  Transmission Date: 20070707
  Serious: Yes (Hospitalization)
  Sender: FDA-Public Use
  Company Number: PHRM2007FR00811

PATIENT
  Sex: Female

DRUGS (1)
  1. COTAREG [Suspect]
     Dosage: 160/12.5 MG, THEN 160/25 MG
     Route: 048

REACTIONS (2)
  - EPILEPSY [None]
  - HYPONATRAEMIA [None]
